FAERS Safety Report 13419700 (Version 1)
Quarter: 2017Q2

REPORT INFORMATION
  Report Type: Spontaneous
  Country: US (occurrence: US)
  Receive Date: 20170407
  Receipt Date: 20170407
  Transmission Date: 20170830
  Serious: Yes (Other)
  Sender: FDA-Public Use
  Company Number: US-ACCORD-050046

PATIENT
  Age: 53 Year
  Sex: Male

DRUGS (12)
  1. BUPROPION. [Concomitant]
     Active Substance: BUPROPION
     Indication: MAJOR DEPRESSION
  2. QUETIAPINE. [Suspect]
     Active Substance: QUETIAPINE
     Indication: SOCIAL ANXIETY DISORDER
     Dosage: NIGHTLY
  3. BUPROPION. [Concomitant]
     Active Substance: BUPROPION
     Indication: SOCIAL ANXIETY DISORDER
  4. QUETIAPINE. [Suspect]
     Active Substance: QUETIAPINE
     Indication: MAJOR DEPRESSION
     Dosage: NIGHTLY
  5. GABAPENTIN. [Concomitant]
     Active Substance: GABAPENTIN
     Indication: SOCIAL ANXIETY DISORDER
  6. BUPROPION-XL [Concomitant]
     Indication: MAJOR DEPRESSION
     Dosage: INITIALLY RECEIVED 300 MG DAILY
  7. GABAPENTIN. [Concomitant]
     Active Substance: GABAPENTIN
     Indication: MAJOR DEPRESSION
  8. GABAPENTIN. [Concomitant]
     Active Substance: GABAPENTIN
     Indication: OBSESSIVE-COMPULSIVE DISORDER
  9. BUPROPION. [Concomitant]
     Active Substance: BUPROPION
     Indication: OBSESSIVE-COMPULSIVE DISORDER
  10. BUPROPION. [Concomitant]
     Active Substance: BUPROPION
     Indication: SOCIAL ANXIETY DISORDER
  11. BUPROPION. [Concomitant]
     Active Substance: BUPROPION
     Indication: OBSESSIVE-COMPULSIVE DISORDER
  12. QUETIAPINE. [Suspect]
     Active Substance: QUETIAPINE
     Indication: OBSESSIVE-COMPULSIVE DISORDER
     Dosage: NIGHTLY

REACTIONS (1)
  - Oculogyric crisis [Recovering/Resolving]
